FAERS Safety Report 5239100-5 (Version None)
Quarter: 2007Q1

REPORT INFORMATION
  Report Type: 
  Country: None (occurrence: None)
  Receive Date: 20061208
  Receipt Date: 20050701
  Transmission Date: 20070707
  Serious: Yes (Other)
  Sender: FDA-Public Use
  Company Number: 2005UW09938

PATIENT
  Age: 69 Year
  Sex: Female
  Weight: 81.646 kg

DRUGS (16)
  1. CRESTOR [Suspect]
     Indication: BLOOD CHOLESTEROL INCREASED
     Dosage: 10 MG QD PO
     Route: 048
  2. CRESTOR [Suspect]
     Indication: BLOOD CHOLESTEROL INCREASED
     Dosage: 5 MG QD PO
     Route: 048
  3. METFORMIN [Concomitant]
  4. CLONIDINE [Concomitant]
  5. ATENOLOL [Concomitant]
  6. MICARDIS [Concomitant]
  7. STARLIX [Concomitant]
  8. PROTONIX [Concomitant]
  9. AVANDIA [Concomitant]
  10. ECOTRIN [Concomitant]
  11. NORVASC [Concomitant]
  12. OXYCODONE HCL AND ACETAMINOPHEN [Concomitant]
  13. CALCIUM [Concomitant]
  14. LUTEIN [Concomitant]
  15. INSULIN [Concomitant]
  16. BILBERRY EXTRACT [Concomitant]

REACTIONS (1)
  - DRY MOUTH [None]
